FAERS Safety Report 14483074 (Version 1)
Quarter: 2018Q1

REPORT INFORMATION
  Report Type: Spontaneous
  Country: US (occurrence: US)
  Receive Date: 20180203
  Receipt Date: 20180203
  Transmission Date: 20180509
  Serious: No
  Sender: FDA-Public Use
  Company Number: US-009507513-1802USA001167

PATIENT
  Sex: Female

DRUGS (8)
  1. CELEBREX [Suspect]
     Active Substance: CELECOXIB
  2. CODEINE [Suspect]
     Active Substance: CODEINE
  3. PRINIVIL [Suspect]
     Active Substance: LISINOPRIL
  4. TRAMADOL HYDROCHLORIDE. [Suspect]
     Active Substance: TRAMADOL HYDROCHLORIDE
  5. HYDROMORPHONE [Suspect]
     Active Substance: HYDROMORPHONE
  6. SILVER NITRATE. [Suspect]
     Active Substance: SILVER NITRATE
  7. VASOTEC [Suspect]
     Active Substance: ENALAPRIL MALEATE
  8. KEFLEX [Suspect]
     Active Substance: CEPHALEXIN

REACTIONS (1)
  - Drug hypersensitivity [Unknown]
